FAERS Safety Report 7915002-8 (Version None)
Quarter: 2011Q4

REPORT INFORMATION
  Report Type: 
  Country: None (occurrence: None)
  Receive Date: 20111115
  Receipt Date: 20111010
  Transmission Date: 20120403
  Serious: Yes (Hospitalization)
  Sender: FDA-Public Use
  Company Number: CH-ROCHE-783207

PATIENT
  Age: 74 Year
  Sex: Male

DRUGS (8)
  1. AVASTIN [Suspect]
     Indication: LUNG ADENOCARCINOMA METASTATIC
     Dosage: LAST DOSE PRIOR TO SAE: 31 MAY 2011 DOSING PER PROTOCOL
     Route: 042
  2. PEMETREXED DISODIUM [Suspect]
     Indication: LUNG ADENOCARCINOMA METASTATIC
     Dosage: LAST DOSE PRIOR TO SAE: 31 MAY 2011 DOSING PER PROTOCOL
     Route: 042
  3. ESCITALOPRAM [Concomitant]
     Route: 048
  4. CISPLATIN [Suspect]
     Indication: LUNG ADENOCARCINOMA METASTATIC
     Dosage: LAST DOSE PRIOR TO SAE: 31 MAY 2011 DOSING PER PROTOCOL
     Route: 042
  5. METFORMIN HCL [Concomitant]
     Route: 048
  6. RISPERIDONE [Concomitant]
     Route: 048
  7. ASPIRIN [Concomitant]
     Dosage: DRUG NAME: ASS CARDIO
     Route: 048
  8. DIAMICRON [Concomitant]
     Dosage: TDD: 30MR
     Route: 048

REACTIONS (1)
  - DEPRESSION [None]
